FAERS Safety Report 15308527 (Version 2)
Quarter: 2018Q3

REPORT INFORMATION
  Report Type: Spontaneous
  Country: US (occurrence: US)
  Receive Date: 20180822
  Receipt Date: 20180927
  Transmission Date: 20181010
  Serious: Yes (Hospitalization, Other)
  Sender: FDA-Public Use
  Company Number: US-NOVOPROD-616900

PATIENT
  Age: 77 Year
  Sex: Female

DRUGS (2)
  1. LEVEMIR [Suspect]
     Active Substance: INSULIN DETEMIR
     Indication: TYPE 2 DIABETES MELLITUS
     Dosage: 34 U, UNK
     Route: 058
     Dates: start: 1998
  2. LEVEMIR [Suspect]
     Active Substance: INSULIN DETEMIR
     Dosage: 28 U, UNK
     Route: 058

REACTIONS (6)
  - Fall [Unknown]
  - Blood glucose increased [Recovering/Resolving]
  - Blood glucose decreased [Recovered/Resolved]
  - Dementia [Unknown]
  - Blood glucose decreased [Recovered/Resolved]
  - Blood glucose decreased [Recovered/Resolved]

NARRATIVE: CASE EVENT DATE: 2015
